FAERS Safety Report 6609044-2 (Version None)
Quarter: 2010Q1

REPORT INFORMATION
  Report Type: 
  Country: None (occurrence: None)
  Receive Date: 20100301
  Receipt Date: 20100218
  Transmission Date: 20100710
  Serious: Yes (Death)
  Sender: FDA-Public Use
  Company Number: US-ELI_LILLY_AND_COMPANY-US201002005555

PATIENT
  Age: 22 Year
  Sex: Male

DRUGS (4)
  1. DULOXETINE HYDROCHLORIDE [Suspect]
  2. OXYCODONE [Concomitant]
  3. ALPRAZOLAM [Concomitant]
  4. OPIOID ANAESTHETICS [Concomitant]

REACTIONS (1)
  - DEATH [None]
